FAERS Safety Report 9485365 (Version 4)
Quarter: 2013Q4

REPORT INFORMATION
  Report Type: Report from Study
  Country: US (occurrence: US)
  Receive Date: 20130828
  Receipt Date: 20131226
  Transmission Date: 20140711
  Serious: Yes (Hospitalization)
  Sender: FDA-Public Use
  Company Number: US-ROCHE-1221291

PATIENT
  Age: 50 Year
  Sex: Male
  Weight: 83.99 kg

DRUGS (6)
  1. PEGASYS [Suspect]
     Indication: CHRONIC HEPATITIS C
     Route: 058
     Dates: start: 201303
  2. INCIVEK [Suspect]
     Indication: CHRONIC HEPATITIS C
     Route: 065
     Dates: start: 20130430
  3. RIBAVIRIN [Suspect]
     Indication: CHRONIC HEPATITIS C
     Dosage: IN DIVIDED DOSES
     Route: 048
     Dates: start: 20130429
  4. RIBAVIRIN [Suspect]
     Dosage: IN DIVIDED DOSES
     Route: 048
     Dates: start: 20130430
  5. DILAUDID [Concomitant]
  6. OXYCODONE [Concomitant]

REACTIONS (24)
  - Thermal burn [Unknown]
  - Arthralgia [Unknown]
  - Back pain [Unknown]
  - Haematochezia [Unknown]
  - Vision blurred [Unknown]
  - Injection site rash [Unknown]
  - Headache [Unknown]
  - Eye pain [Unknown]
  - Candida infection [Unknown]
  - Pyrexia [Unknown]
  - Nausea [Unknown]
  - Vomiting [Unknown]
  - Irritability [Unknown]
  - Diarrhoea haemorrhagic [Unknown]
  - Insomnia [Unknown]
  - Kidney enlargement [Unknown]
  - Splenomegaly [Unknown]
  - Pancreatic enlargement [Unknown]
  - Dehydration [Unknown]
  - Oropharyngeal pain [Unknown]
  - Feeling abnormal [Unknown]
  - Exsanguination [Unknown]
  - Faeces soft [Unknown]
  - Asthenia [Unknown]
